FAERS Safety Report 5693246-6 (Version None)
Quarter: 2008Q2

REPORT INFORMATION
  Report Type: 
  Country: None (occurrence: None)
  Receive Date: 20080403
  Receipt Date: 20080325
  Transmission Date: 20081010
  Serious: Yes (Hospitalization, Other)
  Sender: FDA-Public Use
  Company Number: PHBS2008SE03683

PATIENT
  Age: 20 Year
  Sex: Female

DRUGS (6)
  1. BROMOCRIPTINE MESYLATE [Suspect]
     Indication: PROLACTINOMA
     Dosage: 5 MG, BID
     Dates: start: 19920401, end: 19950904
  2. BROMOCRIPTINE MESYLATE [Suspect]
     Dosage: 5 MG, BID
     Dates: start: 20000201, end: 20010201
  3. QUINAGOLIDE [Suspect]
     Dosage: 75 MG, QD
     Dates: start: 19950401, end: 19951201
  4. QUINAGOLIDE [Suspect]
     Dosage: 0.5 MG, QW
     Dates: start: 20010201, end: 20010801
  5. QUINAGOLIDE [Suspect]
     Dosage: 1 MG, QW
     Dates: start: 20010801, end: 20011201
  6. QUINAGOLIDE [Suspect]
     Dosage: 1.5 MG, QW
     Dates: start: 20011201, end: 20050901

REACTIONS (18)
  - BLOOD PROLACTIN INCREASED [None]
  - CATHETERISATION CARDIAC [None]
  - CENTRAL VENOUS PRESSURE DECREASED [None]
  - DEPRESSION [None]
  - DIZZINESS [None]
  - DYSPNOEA [None]
  - ELECTROCARDIOGRAM ABNORMAL [None]
  - GENERAL PHYSICAL CONDITION ABNORMAL [None]
  - HEPATOMEGALY [None]
  - JUGULAR VEIN DISTENSION [None]
  - NUCLEAR MAGNETIC RESONANCE IMAGING ABNORMAL [None]
  - OEDEMA PERIPHERAL [None]
  - PERICARDIOTOMY [None]
  - PERICARDITIS [None]
  - PERICARDITIS CONSTRICTIVE [None]
  - PITTING OEDEMA [None]
  - PITUITARY TUMOUR [None]
  - PITUITARY TUMOUR REMOVAL [None]
